FAERS Safety Report 8834266 (Version 1)
Quarter: 2012Q4

REPORT INFORMATION
  Report Type: Report from Study
  Country: US (occurrence: US)
  Receive Date: 20121010
  Receipt Date: 20121010
  Transmission Date: 20130627
  Serious: Yes (Death, Hospitalization)
  Sender: FDA-Public Use
  Company Number: US-BAXTER-2012BAX018960

PATIENT
  Age: 40 Year
  Sex: Male

DRUGS (2)
  1. CYTOXAN? (CYCLOPHOSPHAMIDE FOR INJECTION, USP) [Suspect]
     Indication: SYNOVIAL SARCOMA METASTATIC
     Route: 065
     Dates: start: 20120725
  2. PROLEUKIN [Suspect]
     Indication: SYNOVIAL SARCOMA METASTATIC
     Dosage: 1 DF
     Dates: start: 20120801, end: 20120801

REACTIONS (3)
  - Multi-organ failure [Fatal]
  - Escherichia sepsis [Unknown]
  - Neutropenia [Unknown]
